FAERS Safety Report 9725713 (Version 1)
Quarter: 2013Q4

REPORT INFORMATION
  Report Type: Spontaneous
  Country: US (occurrence: None)
  Receive Date: 20131202
  Receipt Date: 20131202
  Transmission Date: 20140711
  Serious: No
  Sender: FDA-Public Use
  Company Number: None

PATIENT
  Age: 30 Year
  Sex: Female
  Weight: 44.45 kg

DRUGS (6)
  1. CREST PRO-HEATH [Suspect]
     Indication: DENTAL CARIES
     Dosage: SIZE OF TOOTHBRUSH HEAD; USUALLY ONCE IN AM SOMETIMES TWICE AT BED TIME; BRUSHED MY TEETH WITH CREST TOOTHPASTE.
  2. CREST PRO-HEATH [Suspect]
     Indication: PROPHYLAXIS
     Dosage: SIZE OF TOOTHBRUSH HEAD; USUALLY ONCE IN AM SOMETIMES TWICE AT BED TIME; BRUSHED MY TEETH WITH CREST TOOTHPASTE.
  3. CREST PRO-HEATH [Suspect]
     Dosage: SIZE OF TOOTHBRUSH HEAD; USUALLY ONCE IN AM SOMETIMES TWICE AT BED TIME; BRUSHED MY TEETH WITH CREST TOOTHPASTE.
  4. CREST PRO-HEATH [Suspect]
     Dosage: SIZE OF TOOTHBRUSH HEAD; USUALLY ONCE IN AM SOMETIMES TWICE AT BED TIME; BRUSHED MY TEETH WITH CREST TOOTHPASTE.
  5. CREST PRO-HEATH [Suspect]
     Dosage: SIZE OF TOOTHBRUSH HEAD; USUALLY ONCE IN AM SOMETIMES TWICE AT BED TIME; BRUSHED MY TEETH WITH CREST TOOTHPASTE.
  6. CREST PRO-HEATH [Suspect]
     Dosage: SIZE OF TOOTHBRUSH HEAD; USUALLY ONCE IN AM SOMETIMES TWICE AT BED TIME; BRUSHED MY TEETH WITH CREST TOOTHPASTE.

REACTIONS (1)
  - Oral mucosal exfoliation [None]
